FAERS Safety Report 4380661-6 (Version None)
Quarter: 2004Q2

REPORT INFORMATION
  Report Type: 
  Country: None (occurrence: None)
  Receive Date: 20040616
  Receipt Date: 20040614
  Transmission Date: 20050107
  Serious: Yes (Hospitalization, Disabling)
  Sender: FDA-Public Use
  Company Number: FI-2004-025325

PATIENT
  Age: 38 Year
  Sex: Female

DRUGS (3)
  1. BETAFERON (BETAFERON (SH Y 579E)) INJECTION, 250UG [Suspect]
     Indication: MULTIPLE SCLEROSIS
     Dosage: 8 MIU , EVERY 2D, SUBCUTANEOUS
     Route: 058
     Dates: start: 20030213, end: 20040501
  2. ACETAMINOPHEN [Concomitant]
  3. VITAMINE C [Concomitant]

REACTIONS (3)
  - ACUTE PSYCHOSIS [None]
  - DEPRESSION [None]
  - FATIGUE [None]
